FAERS Safety Report 13502976 (Version 1)
Quarter: 2017Q2

REPORT INFORMATION
  Report Type: Spontaneous
  Country: US (occurrence: US)
  Receive Date: 20170501
  Receipt Date: 20170501
  Transmission Date: 20170830
  Serious: Yes (Other)
  Sender: FDA-Public Use
  Company Number: None

PATIENT
  Age: 61 Year
  Sex: Female

DRUGS (1)
  1. TALTZ [Suspect]
     Active Substance: IXEKIZUMAB

REACTIONS (3)
  - Injection site swelling [None]
  - Pain in extremity [None]
  - Psoriasis [None]

NARRATIVE: CASE EVENT DATE: 20170128
